FAERS Safety Report 15550775 (Version 1)
Quarter: 2018Q4

REPORT INFORMATION
  Report Type: Spontaneous
  Country: US (occurrence: US)
  Receive Date: 20181025
  Receipt Date: 20181025
  Transmission Date: 20190205
  Serious: Yes (Other)
  Sender: FDA-Public Use
  Company Number: US-JNJFOC-20181023146

PATIENT
  Sex: Female

DRUGS (1)
  1. LEVAQUIN [Suspect]
     Active Substance: LEVOFLOXACIN
     Indication: PRODUCT USED FOR UNKNOWN INDICATION
     Route: 065

REACTIONS (7)
  - Tendon rupture [Unknown]
  - Tooth fracture [Unknown]
  - Onychomadesis [Unknown]
  - Neuropathy peripheral [Unknown]
  - Toxicity to various agents [Unknown]
  - Insomnia [Unknown]
  - Food intolerance [Unknown]
